FAERS Safety Report 25866840 (Version 1)
Quarter: 2025Q4

REPORT INFORMATION
  Report Type: Spontaneous
  Country: US (occurrence: US)
  Receive Date: 20251001
  Receipt Date: 20251001
  Transmission Date: 20260118
  Serious: No
  Sender: RANBAXY
  Company Number: US-SUN PHARMACEUTICAL INDUSTRIES LTD-2025R1-493409

PATIENT
  Sex: Female

DRUGS (1)
  1. BUPRENORPHINE\NALOXONE [Suspect]
     Active Substance: BUPRENORPHINE\NALOXONE
     Indication: Fracture
     Dosage: UNK UNK, OD
     Route: 060
     Dates: start: 20250116

REACTIONS (10)
  - Headache [Unknown]
  - Dizziness [Unknown]
  - Palpitations [Unknown]
  - Head titubation [Unknown]
  - Erythema [Unknown]
  - Chest pain [Unknown]
  - Hypertension [Unknown]
  - Electrocardiogram abnormal [Unknown]
  - Condition aggravated [Unknown]
  - Drug ineffective [Unknown]
